FAERS Safety Report 12593712 (Version 1)
Quarter: 2016Q3

REPORT INFORMATION
  Report Type: Spontaneous
  Country: US (occurrence: US)
  Receive Date: 20160726
  Receipt Date: 20160726
  Transmission Date: 20161109
  Serious: No
  Sender: FDA-Public Use
  Company Number: US-ABBVIE-15P-163-1455538-00

PATIENT
  Age: 26 Year
  Sex: Female

DRUGS (6)
  1. ARMOR [Concomitant]
     Indication: HYPOTHYROIDISM
  2. SYNTHROID [Suspect]
     Active Substance: LEVOTHYROXINE SODIUM
     Indication: HYPOTHYROIDISM
     Route: 065
  3. SYNTHROID [Suspect]
     Active Substance: LEVOTHYROXINE SODIUM
     Indication: HYPOTHYROIDISM
     Route: 065
  4. SYNTHROID [Suspect]
     Active Substance: LEVOTHYROXINE SODIUM
     Indication: HYPOTHYROIDISM
     Route: 065
  5. ARMOR [Concomitant]
  6. CYTOMEL [Concomitant]
     Active Substance: LIOTHYRONINE SODIUM
     Indication: PRODUCT USED FOR UNKNOWN INDICATION

REACTIONS (8)
  - Autoimmune thyroiditis [Unknown]
  - Alopecia [Unknown]
  - Pyrexia [Unknown]
  - Tri-iodothyronine decreased [Unknown]
  - Weight increased [Unknown]
  - Fatigue [Unknown]
  - Thyroxine increased [Unknown]
  - Blood thyroid stimulating hormone decreased [Unknown]
